FAERS Safety Report 15138405 (Version 1)
Quarter: 2018Q3

REPORT INFORMATION
  Report Type: Spontaneous
  Country: PT (occurrence: PT)
  Receive Date: 20180713
  Receipt Date: 20180713
  Transmission Date: 20181010
  Serious: Yes (Hospitalization, Other)
  Sender: FDA-Public Use
  Company Number: PT-AUROBINDO-AUR-APL-2018-035521

PATIENT
  Age: 13 Year
  Sex: Female

DRUGS (3)
  1. IBUPROFEN. [Suspect]
     Active Substance: IBUPROFEN
     Indication: PYREXIA
     Dosage: UNK
     Route: 065
  2. IBUPROFEN. [Suspect]
     Active Substance: IBUPROFEN
     Indication: HEADACHE
     Dosage: UNK
     Route: 065
  3. IBUPROFEN. [Suspect]
     Active Substance: IBUPROFEN
     Indication: TONSILLITIS
     Dosage: UNK
     Route: 065

REACTIONS (11)
  - Genital odour [Recovered/Resolved]
  - Genital haemorrhage [Recovered/Resolved]
  - Lip erythema [Recovered/Resolved]
  - Urinary retention [Recovered/Resolved]
  - Condition aggravated [Recovered/Resolved]
  - Vulval disorder [Recovered/Resolved]
  - Lip oedema [Recovered/Resolved]
  - Vulvovaginal injury [Recovered/Resolved]
  - Genital ulceration [Recovered/Resolved]
  - Genital tract inflammation [Recovered/Resolved]
  - Oedema genital [Recovered/Resolved]
